FAERS Safety Report 22074771 (Version 1)
Quarter: 2023Q1

REPORT INFORMATION
  Report Type: Spontaneous
  Country: NL (occurrence: NL)
  Receive Date: 20230308
  Receipt Date: 20230308
  Transmission Date: 20230417
  Serious: Yes (Other)
  Sender: FDA-Public Use
  Company Number: None

PATIENT
  Sex: Female
  Weight: 69 kg

DRUGS (1)
  1. AMOXICILLIN\CLAVULANATE POTASSIUM [Suspect]
     Active Substance: AMOXICILLIN\CLAVULANATE POTASSIUM
     Indication: Uterine infection
     Dosage: 1 DOSAGE FORM, Q8H (3X PER DAG 1 STUK)
     Route: 065
     Dates: start: 20230103

REACTIONS (3)
  - Arrhythmia [Not Recovered/Not Resolved]
  - Pain [Not Recovered/Not Resolved]
  - Menstruation delayed [Not Recovered/Not Resolved]
